FAERS Safety Report 9796204 (Version 1)
Quarter: 2014Q1

REPORT INFORMATION
  Report Type: Report from Study
  Country: US (occurrence: US)
  Receive Date: 20140103
  Receipt Date: 20140103
  Transmission Date: 20141002
  Serious: Yes (Other)
  Sender: FDA-Public Use
  Company Number: US-JNJFOC-20131218042

PATIENT
  Age: 61 Year
  Sex: Female

DRUGS (3)
  1. INVOKANA [Suspect]
     Indication: PRODUCT USED FOR UNKNOWN INDICATION
     Route: 048
     Dates: start: 20131227, end: 20131230
  2. METFORMIN [Concomitant]
  3. LASIX [Concomitant]

REACTIONS (2)
  - Urticaria [Unknown]
  - Nausea [Recovered/Resolved]
